FAERS Safety Report 12651471 (Version 1)
Quarter: 2016Q3

REPORT INFORMATION
  Report Type: Spontaneous
  Country: FR (occurrence: FR)
  Receive Date: 20160815
  Receipt Date: 20160815
  Transmission Date: 20161109
  Serious: Yes (Hospitalization)
  Sender: FDA-Public Use
  Company Number: FR-BAYER-2016-150425

PATIENT

DRUGS (3)
  1. ADVIL [Suspect]
     Active Substance: IBUPROFEN
     Dosage: 10 DF, ONCE
     Route: 064
     Dates: start: 20160518, end: 20160518
  2. LEPTICUR [Suspect]
     Active Substance: TROPATEPINE HYDROCHLORIDE
     Dosage: 150 MG, ONCE
     Route: 064
     Dates: start: 20160518, end: 20160518
  3. LEVITRA [Suspect]
     Active Substance: VARDENAFIL HYDROCHLORIDE TRIHYDRATE
     Dosage: 4 DF, ONCE
     Route: 064
     Dates: start: 20160518, end: 20160518

REACTIONS (1)
  - Tachycardia foetal [Recovered/Resolved]

NARRATIVE: CASE EVENT DATE: 20160518
